FAERS Safety Report 4883208-0 (Version None)
Quarter: 2006Q1

REPORT INFORMATION
  Report Type: 
  Country: None (occurrence: None)
  Receive Date: 20060117
  Receipt Date: 20060117
  Transmission Date: 20060701
  Serious: Yes (Hospitalization)
  Sender: FDA-Public Use
  Company Number: None

PATIENT
  Sex: Male

DRUGS (2)
  1. NYQUIL ADULT (ETHANOL 10-25%, DEXTROMETHORPHAN HYDROBROMIDE 15-30 MG, [Suspect]
     Indication: MALAISE
     Dosage: SEE IMAGE
     Route: 048
     Dates: start: 20051106, end: 20051108
  2. PERCOCET [Concomitant]

REACTIONS (4)
  - CONDITION AGGRAVATED [None]
  - CONVULSION [None]
  - LOSS OF CONSCIOUSNESS [None]
  - ROAD TRAFFIC ACCIDENT [None]
